FAERS Safety Report 22109178 (Version 4)
Quarter: 2023Q2

REPORT INFORMATION
  Report Type: Other
  Country: RO (occurrence: None)
  Receive Date: 20230317
  Receipt Date: 20230607
  Transmission Date: 20230722
  Serious: Yes (Hospitalization, Other)
  Sender: FDA-Public Use
  Company Number: RO-ROCHE-3247666

PATIENT
  Age: 64 Year
  Sex: Male
  Weight: 74 kg

DRUGS (7)
  1. ATEZOLIZUMAB [Suspect]
     Active Substance: ATEZOLIZUMAB
     Indication: Hepatocellular carcinoma
     Dosage: LAST STUDY DRUG ADMIN PRIOR AE IS 1200 MG: 19/DEC/2022?START DATE OF MOST RECENT DOSE OF STUDY DRUG
     Route: 041
     Dates: start: 20221125
  2. BEVACIZUMAB [Suspect]
     Active Substance: BEVACIZUMAB
     Indication: Hepatocellular carcinoma
     Route: 065
     Dates: start: 20221125
  3. ORNITHINE ASPARTATE [Concomitant]
     Active Substance: ORNITHINE ASPARTATE
     Dates: start: 20230228, end: 20230228
  4. RIFAXIMIN [Concomitant]
     Active Substance: RIFAXIMIN
     Dates: start: 20230228, end: 20230228
  5. ADRENALIN [Concomitant]
     Active Substance: EPINEPHRINE
     Dates: start: 20230228, end: 20230228
  6. LACTULOSE [Concomitant]
     Active Substance: LACTULOSE
     Dates: start: 20230228, end: 20230228
  7. CARVEDILOL [Concomitant]
     Active Substance: CARVEDILOL
     Dates: start: 20230228, end: 20230228

REACTIONS (3)
  - Drug-induced liver injury [Not Recovered/Not Resolved]
  - Hypertension [Not Recovered/Not Resolved]
  - Hepatic encephalopathy [Recovered/Resolved]

NARRATIVE: CASE EVENT DATE: 20221219
